FAERS Safety Report 4355497-2 (Version None)
Quarter: 2004Q2

REPORT INFORMATION
  Report Type: 
  Country: None (occurrence: None)
  Receive Date: 20040510
  Receipt Date: 20040428
  Transmission Date: 20050107
  Serious: Yes (Hospitalization)
  Sender: FDA-Public Use
  Company Number: FR-JNJFOC-20040406444

PATIENT
  Age: 25 Year
  Sex: Male

DRUGS (2)
  1. DAKTARIN [Suspect]
     Dates: start: 20040211, end: 20040225
  2. VITAMIN C [Concomitant]

REACTIONS (4)
  - ATRIAL FIBRILLATION [None]
  - FALL [None]
  - HYPOKALAEMIA [None]
  - SYNCOPE VASOVAGAL [None]
